FAERS Safety Report 25986050 (Version 1)
Quarter: 2025Q4

REPORT INFORMATION
  Report Type: Spontaneous
  Country: US (occurrence: US)
  Receive Date: 20251102
  Receipt Date: 20251102
  Transmission Date: 20260117
  Serious: No
  Sender: INVENTIA HEALTHCARE LTD
  Company Number: US-IHL-000691

PATIENT
  Sex: Male

DRUGS (1)
  1. PALIPERIDONE [Suspect]
     Active Substance: PALIPERIDONE
     Indication: Schizophrenia
     Route: 065

REACTIONS (1)
  - Drug ineffective [Unknown]
